FAERS Safety Report 13649430 (Version 2)
Quarter: 2017Q3

REPORT INFORMATION
  Report Type: Spontaneous
  Country: US (occurrence: US)
  Receive Date: 20170613
  Receipt Date: 20170717
  Transmission Date: 20171127
  Serious: Yes (Death, Life-Threatening, Hospitalization, Other)
  Sender: FDA-Public Use
  Company Number: US-AUROBINDO-AUR-APL-2017-35192

PATIENT
  Age: 7 Decade
  Sex: Female

DRUGS (3)
  1. TACROLIMUS. [Suspect]
     Active Substance: TACROLIMUS
     Indication: IMMUNOSUPPRESSION
     Route: 065
  2. PREDNISONE. [Suspect]
     Active Substance: PREDNISONE
     Indication: IMMUNOSUPPRESSION
     Dosage: UNK
     Route: 065
  3. MYCOPHENOLATE MOFETIL. [Suspect]
     Active Substance: MYCOPHENOLATE MOFETIL
     Indication: IMMUNOSUPPRESSION
     Dosage: UNK
     Route: 065

REACTIONS (13)
  - Ataxia [Unknown]
  - Hydrocephalus [Fatal]
  - Aspergillus infection [Fatal]
  - Brain oedema [Fatal]
  - Nausea [Unknown]
  - Subarachnoid haemorrhage [Fatal]
  - Mental status changes [Unknown]
  - Asthenia [Unknown]
  - Vomiting [Unknown]
  - Meningitis [Fatal]
  - Myalgia [Unknown]
  - Fatigue [Unknown]
  - Headache [Unknown]
